FAERS Safety Report 22165532 (Version 1)
Quarter: 2023Q2

REPORT INFORMATION
  Report Type: Spontaneous
  Country: SE (occurrence: SE)
  Receive Date: 20230403
  Receipt Date: 20230403
  Transmission Date: 20230722
  Serious: Yes (Life-Threatening, Other)
  Sender: FDA-Public Use
  Company Number: SE-GlaxoSmithKline-B0485699A

PATIENT
  Age: 63 Year
  Sex: Male

DRUGS (2)
  1. AVODART [Suspect]
     Active Substance: DUTASTERIDE
     Indication: Prostatitis
     Dosage: 0.5 MG, QD
     Route: 048
     Dates: start: 200409, end: 20070222
  2. TRIOBE [Concomitant]
     Indication: Product used for unknown indication
     Dosage: UNK
     Route: 065

REACTIONS (3)
  - Cerebral infarction [Not Recovered/Not Resolved]
  - Disorientation [Unknown]
  - Amnesia [Unknown]

NARRATIVE: CASE EVENT DATE: 20060601
